FAERS Safety Report 25752904 (Version 1)
Quarter: 2025Q3

REPORT INFORMATION
  Report Type: Spontaneous
  Country: IL (occurrence: IL)
  Receive Date: 20250902
  Receipt Date: 20250902
  Transmission Date: 20251021
  Serious: Yes (Congenital Anomaly, Other)
  Sender: NOVO NORDISK
  Company Number: IL-NOVOPROD-1510071

PATIENT

DRUGS (1)
  1. WEGOVY [Suspect]
     Active Substance: SEMAGLUTIDE
     Indication: Product used for unknown indication
     Dosage: 1 MG, QW
     Route: 064

REACTIONS (2)
  - Congenital teratoma [Unknown]
  - Foetal exposure during pregnancy [Recovered/Resolved]
